FAERS Safety Report 5395148-1 (Version None)
Quarter: 2007Q3

REPORT INFORMATION
  Report Type: 
  Country: None (occurrence: None)
  Receive Date: 20070724
  Receipt Date: 20070717
  Transmission Date: 20080115
  Serious: Yes (Other)
  Sender: FDA-Public Use
  Company Number: US-AVENTIS-200715190US

PATIENT
  Sex: Female

DRUGS (12)
  1. LOVENOX [Suspect]
     Indication: DEEP VEIN THROMBOSIS
     Dosage: DOSE: UNK
     Dates: start: 20060403, end: 20060601
  2. REVLIMID [Suspect]
     Indication: MYELODYSPLASTIC SYNDROME
     Route: 048
     Dates: start: 20060216, end: 20060403
  3. REVLIMID [Suspect]
     Route: 048
     Dates: start: 20061212
  4. REVLIMID [Suspect]
     Route: 048
     Dates: start: 20070201
  5. COUMADIN [Suspect]
     Indication: DEEP VEIN THROMBOSIS
     Dosage: DOSE: UNK
     Dates: start: 20060401, end: 20060601
  6. SYNTHROID [Concomitant]
     Dosage: DOSE: UNK
  7. NORVASC [Concomitant]
     Indication: HYPERTENSION
     Dosage: DOSE: UNK
  8. OSCAL                              /00108001/ [Concomitant]
     Dosage: DOSE: UNK
  9. ZINC [Concomitant]
     Dosage: DOSE: UNK
  10. VITAMIN  E [Concomitant]
     Dosage: DOSE: UNK
  11. VITAMIN CAP [Concomitant]
     Dosage: DOSE: UNK
  12. VITAMIN B-12 [Concomitant]
     Dosage: DOSE: UNK

REACTIONS (3)
  - ANAEMIA [None]
  - CONVULSION [None]
  - INTRA-ABDOMINAL HAEMORRHAGE [None]
